FAERS Safety Report 16564519 (Version 2)
Quarter: 2019Q4

REPORT INFORMATION
  Report Type: Spontaneous
  Country: JP (occurrence: JP)
  Receive Date: 20190712
  Receipt Date: 20191017
  Transmission Date: 20200122
  Serious: Yes (Hospitalization, Other)
  Sender: FDA-Public Use
  Company Number: JP-ASTRAZENECA-2019SE99685

PATIENT
  Age: 68 Year
  Sex: Female

DRUGS (2)
  1. TAGRISSO [Suspect]
     Active Substance: OSIMERTINIB
     Indication: NON-SMALL CELL LUNG CANCER
     Route: 048
     Dates: start: 20190219, end: 20190528
  2. TAGRISSO [Suspect]
     Active Substance: OSIMERTINIB
     Indication: NON-SMALL CELL LUNG CANCER
     Route: 048
     Dates: start: 20190217

REACTIONS (14)
  - Pain in extremity [Recovered/Resolved]
  - Decreased appetite [Unknown]
  - Malaise [Unknown]
  - Skin exfoliation [Unknown]
  - Acne [Unknown]
  - Nausea [Unknown]
  - Oedema peripheral [Unknown]
  - Skin necrosis [Recovered/Resolved]
  - Stevens-Johnson syndrome [Unknown]
  - Dry skin [Unknown]
  - Delirium [Unknown]
  - Rash [Recovering/Resolving]
  - Dementia [Unknown]
  - Sleep disorder due to a general medical condition [Unknown]

NARRATIVE: CASE EVENT DATE: 2019
